FAERS Safety Report 9245703 (Version 1)
Quarter: 2013Q2

REPORT INFORMATION
  Report Type: Spontaneous
  Country: US (occurrence: US)
  Receive Date: 20130422
  Receipt Date: 20130422
  Transmission Date: 20140414
  Serious: No
  Sender: FDA-Public Use
  Company Number: US-PFIZER INC-2013124193

PATIENT
  Age: 60 Year
  Sex: Female
  Weight: 59.4 kg

DRUGS (5)
  1. CELEBREX [Suspect]
     Indication: ARTHRALGIA
     Dosage: ONCE A DAY
     Route: 048
     Dates: start: 2004
  2. VANCOMYCIN HCL [Suspect]
     Dosage: UNK
     Dates: start: 2010, end: 2010
  3. MORPHINE [Concomitant]
     Indication: PAIN
     Dosage: UNK
  4. BENADRYL [Concomitant]
     Indication: SLEEP DISORDER
     Dosage: UNK
  5. KLONOPIN [Concomitant]
     Indication: SLEEP DISORDER
     Dosage: UNK

REACTIONS (2)
  - Drug hypersensitivity [Unknown]
  - Urticaria [Unknown]
